FAERS Safety Report 13094205 (Version 1)
Quarter: 2017Q1

REPORT INFORMATION
  Report Type: Spontaneous
  Country: US (occurrence: US)
  Receive Date: 20170106
  Receipt Date: 20170106
  Transmission Date: 20170428
  Serious: Yes (Other)
  Sender: FDA-Public Use
  Company Number: US-ESPERO PHARMACEUTICALS-ESP201612-000059

PATIENT
  Age: 71 Year
  Sex: Male

DRUGS (13)
  1. GLIPIZIDE. [Concomitant]
     Active Substance: GLIPIZIDE
  2. PANTOPRAZOLE [Concomitant]
     Active Substance: PANTOPRAZOLE SODIUM
  3. ASPIRIN. [Concomitant]
     Active Substance: ASPIRIN
  4. SIMVASTATIN. [Concomitant]
     Active Substance: SIMVASTATIN
  5. LISINOPRIL. [Concomitant]
     Active Substance: LISINOPRIL
  6. SPIRONOLACTONE. [Concomitant]
     Active Substance: SPIRONOLACTONE
  7. NITROGLYCERIN. [Suspect]
     Active Substance: NITROGLYCERIN
     Route: 060
  8. CLOPIDOGREL [Concomitant]
     Active Substance: CLOPIDOGREL BISULFATE
  9. METFORMIN [Concomitant]
     Active Substance: METFORMIN HYDROCHLORIDE
  10. METOPROLOL. [Concomitant]
     Active Substance: METOPROLOL
  11. COUMADIN [Concomitant]
     Active Substance: WARFARIN SODIUM
  12. NITROGLYCERIN. [Suspect]
     Active Substance: NITROGLYCERIN
     Route: 060
  13. NITROGLYCERIN. [Suspect]
     Active Substance: NITROGLYCERIN
     Route: 060

REACTIONS (1)
  - Arteriospasm coronary [Recovered/Resolved]
